FAERS Safety Report 21487211 (Version 2)
Quarter: 2022Q4

REPORT INFORMATION
  Report Type: Spontaneous
  Country: US (occurrence: US)
  Receive Date: 20221020
  Receipt Date: 20221031
  Transmission Date: 20230113
  Serious: No
  Sender: FDA-Public Use
  Company Number: US-GSK-US2022AMR149963

PATIENT
  Sex: Female

DRUGS (1)
  1. BENLYSTA [Suspect]
     Active Substance: BELIMUMAB
     Indication: Systemic lupus erythematosus
     Dosage: 200 MG/ML, WE (ONCE WEEKLY)
     Route: 058

REACTIONS (21)
  - Malaise [Unknown]
  - Multiple allergies [Unknown]
  - Pain [Unknown]
  - Back pain [Unknown]
  - Dyspnoea [Unknown]
  - Respiratory tract congestion [Unknown]
  - Fatigue [Unknown]
  - Dizziness [Unknown]
  - Nausea [Unknown]
  - Illness [Unknown]
  - Mobility decreased [Unknown]
  - Eye disorder [Unknown]
  - Hordeolum [Unknown]
  - Erythema of eyelid [Unknown]
  - Asthenopia [Unknown]
  - Eyelid margin crusting [Unknown]
  - Drainage [Unknown]
  - Nodule [Unknown]
  - Thyroid pain [Unknown]
  - Infection [Unknown]
  - Hypersensitivity [Unknown]
